FAERS Safety Report 5244144-3 (Version None)
Quarter: 2007Q1

REPORT INFORMATION
  Report Type: 
  Country: None (occurrence: None)
  Receive Date: 20070222
  Receipt Date: 20070131
  Transmission Date: 20070707
  Serious: Yes (Other)
  Sender: FDA-Public Use
  Company Number: GB-PFIZER INC-2007011438

PATIENT
  Sex: Female

DRUGS (1)
  1. DELTACORTRIL [Suspect]
     Route: 048

REACTIONS (10)
  - ABDOMINAL DISTENSION [None]
  - ASTHENIA [None]
  - DECREASED INTEREST [None]
  - DIPLOPIA [None]
  - DISORIENTATION [None]
  - EYE IRRITATION [None]
  - MIGRAINE [None]
  - SKIN ATROPHY [None]
  - STRESS [None]
  - VISION BLURRED [None]
